FAERS Safety Report 7809011 (Version 3)
Quarter: 2013Q1

REPORT INFORMATION
  Report Type: Report from Study
  Country: JP (occurrence: JP)
  Receive Date: 20110211
  Receipt Date: 20130213
  Transmission Date: 20140127
  Serious: Yes (Death, Hospitalization, Other)
  Sender: FDA-Public Use
  Company Number: PHHY2011JP09981

PATIENT
  Age: 74 Year
  Sex: Male
  Weight: 55 kg

DRUGS (11)
  1. ICL670A [Suspect]
     Indication: MYELODYSPLASTIC SYNDROME
     Dosage: 1000 MG, DAILY
     Route: 048
     Dates: start: 20090721, end: 20090914
  2. ICL670A [Suspect]
     Dosage: 750 MG, DAILY
     Route: 048
     Dates: start: 20090929, end: 20100125
  3. ICL670A [Suspect]
     Dosage: 1000 MG, DAILY
     Route: 048
     Dates: start: 20100126, end: 20100223
  4. ICL670A [Suspect]
     Dosage: 500 MG, DAILY
     Route: 048
     Dates: start: 20100224, end: 20100309
  5. ICL670A [Suspect]
     Dosage: 500 MG, DAILY
     Route: 048
     Dates: start: 20100622, end: 20101101
  6. FLOMOX [Suspect]
     Dosage: 300 MG, DAILY
     Route: 048
     Dates: start: 20090721, end: 20091012
  7. MAGNESIUM OXIDE [Concomitant]
     Indication: PROPHYLAXIS
     Dosage: 1.5 G, UNK
     Route: 048
     Dates: start: 20090721
  8. MAGNESIUM OXIDE [Concomitant]
     Dosage: 1.5 G, UNK
     Dates: end: 20101101
  9. ALFAROL [Concomitant]
     Indication: MYELODYSPLASTIC SYNDROME
     Dosage: 0.75 UG, UNK
     Route: 048
     Dates: start: 20090721
  10. ALFAROL [Concomitant]
     Dosage: 0.75 UG, UNK
     Route: 048
     Dates: end: 20101101
  11. GENTACIN [Concomitant]
     Dosage: 20 G, UNK
     Route: 061
     Dates: start: 20090721, end: 20090818

REACTIONS (11)
  - Myelodysplastic syndrome [Fatal]
  - Condition aggravated [Fatal]
  - Hypophagia [Not Recovered/Not Resolved]
  - Decreased appetite [Not Recovered/Not Resolved]
  - Renal impairment [Recovered/Resolved]
  - Serum ferritin increased [Unknown]
  - Creatinine renal clearance increased [Recovered/Resolved]
  - Ileus [Recovered/Resolved]
  - Abdominal pain lower [Recovering/Resolving]
  - Back pain [Recovered/Resolved]
  - Subcutaneous abscess [Recovered/Resolved]
